FAERS Safety Report 25980883 (Version 1)
Quarter: 2025Q4

REPORT INFORMATION
  Report Type: Spontaneous
  Country: US (occurrence: US)
  Receive Date: 20251030
  Receipt Date: 20251030
  Transmission Date: 20260118
  Serious: No
  Sender: FRESENIUS MEDICAL CARE
  Company Number: US-FMCRTG-FMC-2510-001601

PATIENT
  Age: 85 Year
  Sex: Male

DRUGS (1)
  1. DELFLEX WITH DEXTROSE 1.5% LOW MAGNESIUM LOW CALCIUM [Suspect]
     Active Substance: CALCIUM CHLORIDE\DEXTROSE\MAGNESIUM CHLORIDE\SODIUM CHLORIDE\SODIUM LACTATE
     Indication: End stage renal disease
     Dosage: 5 FILLS, 2L FILL, 2 HR. DWELL TIME. HE TRIED THIS FOR 2 DAYS. PREVIOUS TO THIS HIS CCPD PRESCRIPTION
     Route: 033

REACTIONS (2)
  - Inguinal hernia [Unknown]
  - Diaphragmatic hernia [Unknown]
